FAERS Safety Report 6196200-3 (Version None)
Quarter: 2009Q2

REPORT INFORMATION
  Report Type: 
  Country: None (occurrence: None)
  Receive Date: 20090518
  Receipt Date: 20090507
  Transmission Date: 20091009
  Serious: Yes (Other)
  Sender: FDA-Public Use
  Company Number: GXKR2009GB04833

PATIENT
  Age: 75 Year
  Sex: Female
  Weight: 76 kg

DRUGS (9)
  1. AMOXICILLIN [Suspect]
     Indication: LOWER RESPIRATORY TRACT INFECTION
     Dosage: 250 MG, TID, ORAL
     Route: 048
     Dates: start: 20090325, end: 20090326
  2. AUGMENTIN '125' [Suspect]
     Indication: LOWER RESPIRATORY TRACT INFECTION
     Dosage: 1.2 G, INTRAVENOUS
     Route: 042
     Dates: start: 20090318, end: 20090322
  3. AUGMENTIN '125' [Suspect]
     Indication: LOWER RESPIRATORY TRACT INFECTION
     Dosage: 375 MG, TID, ORAL
     Route: 048
     Dates: start: 20090323, end: 20090324
  4. ESOMEPRAZOLE MAGNESIUM [Suspect]
     Dosage: 40 MG, INTRAVENOUS
     Route: 042
  5. KEPPRA [Suspect]
     Indication: EPILEPSY
     Dosage: 2.5 G/DAY, INTRAVENOUS
     Route: 042
  6. FERROUS FUMARATE [Concomitant]
  7. LAMOTRIGINE [Concomitant]
  8. LANSOPRAZOLE [Concomitant]
  9. SENNA (SENNA, SENNA, SENNA ALEXANDRINA) [Concomitant]

REACTIONS (5)
  - BLOOD ALKALINE PHOSPHATASE INCREASED [None]
  - DRUG INTERACTION [None]
  - GAMMA-GLUTAMYLTRANSFERASE INCREASED [None]
  - JAUNDICE [None]
  - LIVER FUNCTION TEST ABNORMAL [None]
